FAERS Safety Report 25468083 (Version 3)
Quarter: 2025Q2

REPORT INFORMATION
  Report Type: Spontaneous
  Country: US (occurrence: US)
  Receive Date: 20250623
  Receipt Date: 20250630
  Transmission Date: 20250716
  Serious: Yes (Death, Life-Threatening, Hospitalization, Other)
  Sender: PFIZER
  Company Number: US-MLMSERVICE-20250612-PI540017-00270-1

PATIENT
  Age: 15 Year
  Sex: Male
  Weight: 71.7 kg

DRUGS (9)
  1. METHYLPREDNISOLONE SODIUM SUCCINATE [Suspect]
     Active Substance: METHYLPREDNISOLONE SODIUM SUCCINATE
     Indication: Papilloedema
     Dosage: 1ST ROUND OF HIGH-DOSE
     Route: 042
     Dates: start: 20220714, end: 20220716
  2. METHYLPREDNISOLONE SODIUM SUCCINATE [Suspect]
     Active Substance: METHYLPREDNISOLONE SODIUM SUCCINATE
     Indication: Hereditary retinal dystrophy
     Route: 042
     Dates: start: 20220807, end: 20220809
  3. METHYLPREDNISOLONE SODIUM SUCCINATE [Suspect]
     Active Substance: METHYLPREDNISOLONE SODIUM SUCCINATE
     Indication: Neuromyelitis optica spectrum disorder
     Route: 042
     Dates: start: 20221224
  4. TOCILIZUMAB [Suspect]
     Active Substance: TOCILIZUMAB
     Indication: Neuromyelitis optica spectrum disorder
     Route: 042
     Dates: start: 20221228, end: 20230505
  5. PREDNISONE [Suspect]
     Active Substance: PREDNISONE
     Indication: Papilloedema
     Dosage: TAPER 60MG/D; DECREASE 5 MG WEEKLY. CONSISTENTLY RECEIVED 60 MG OF PREDNISONE/EQUIVALENT OVER 5 MO
     Route: 048
     Dates: start: 20220809
  6. PREDNISONE [Suspect]
     Active Substance: PREDNISONE
     Indication: Hereditary retinal dystrophy
     Route: 042
     Dates: start: 20230123
  7. PREDNISONE [Suspect]
     Active Substance: PREDNISONE
     Indication: Neuromyelitis optica spectrum disorder
  8. RITUXIMAB [Concomitant]
     Active Substance: RITUXIMAB
     Indication: Blindness
     Dosage: 5 MG, WEEKLY (4 DOSES)
     Route: 048
     Dates: start: 20221028, end: 20221118
  9. HUMAN IMMUNOGLOBULIN G [Concomitant]
     Active Substance: HUMAN IMMUNOGLOBULIN G
     Indication: Visual impairment
     Dosage: 2 G/KG/DAY
     Route: 042
     Dates: start: 20220725, end: 20220729

REACTIONS (11)
  - Duodenal perforation [Fatal]
  - Disseminated aspergillosis [Fatal]
  - Abdominal infection [Fatal]
  - Bacteraemia [Fatal]
  - Hepatic failure [Fatal]
  - Renal failure [Fatal]
  - Multiple organ dysfunction syndrome [Fatal]
  - Gastrointestinal haemorrhage [Fatal]
  - Fungal peritonitis [Fatal]
  - Drug ineffective for unapproved indication [Unknown]
  - Off label use [Unknown]

NARRATIVE: CASE EVENT DATE: 20230101
